FAERS Safety Report 25499788 (Version 1)
Quarter: 2025Q3

REPORT INFORMATION
  Report Type: Spontaneous
  Country: US (occurrence: None)
  Receive Date: 20250701
  Receipt Date: 20250701
  Transmission Date: 20251020
  Serious: Yes (Hospitalization)
  Sender: FDA-CTU
  Company Number: None

PATIENT
  Age: 8 Year
  Sex: Male

DRUGS (19)
  1. CREON [Suspect]
     Active Substance: PANCRELIPASE AMYLASE\PANCRELIPASE LIPASE\PANCRELIPASE PROTEASE
     Indication: Cystic fibrosis
     Route: 048
  2. CREON [Suspect]
     Active Substance: PANCRELIPASE AMYLASE\PANCRELIPASE LIPASE\PANCRELIPASE PROTEASE
     Route: 048
  3. PULMOZYME [Suspect]
     Active Substance: DORNASE ALFA
     Indication: Cystic fibrosis
     Dosage: 1 VIAL DAILY RESDPIRATORY (INHALATION)?
     Route: 055
  4. PNEUMOCOCCAL VACCINE NOS [Suspect]
     Active Substance: PNEUMOCOCCAL VACCINE
  5. ABRYSVO [Suspect]
     Active Substance: RECOMBINANT STABILIZED RSV A PREFUSION F ANTIGEN\RECOMBINANT STABILIZED RSV B PREFUSION F ANTIGEN
  6. ALBUTEROL [Concomitant]
     Active Substance: ALBUTEROL
  7. AMITIZA [Concomitant]
     Active Substance: LUBIPROSTONE
  8. CETIRIZINE [Concomitant]
     Active Substance: CETIRIZINE HYDROCHLORIDE
  9. DULERA [Concomitant]
     Active Substance: FORMOTEROL FUMARATE DIHYDRATE\MOMETASONE FUROATE
  10. ESOMEPRAZOLE [Concomitant]
     Active Substance: ESOMEPRAZOLE
  11. FLUTICASONE [Concomitant]
     Active Substance: FLUTICASONE
  12. KALYDECO [Concomitant]
     Active Substance: IVACAFTOR
  13. MONTELUKAST [Suspect]
     Active Substance: MONTELUKAST
  14. ONDANSETRON [Concomitant]
     Active Substance: ONDANSETRON
  15. MIRALAX [Concomitant]
     Active Substance: POLYETHYLENE GLYCOL 3350
  16. sodium chloride neb [Concomitant]
  17. VENTOLIN [Concomitant]
     Active Substance: ALBUTEROL SULFATE
  18. APTENSIO XR [Concomitant]
     Active Substance: METHYLPHENIDATE HYDROCHLORIDE
  19. VITAMINS [Concomitant]
     Active Substance: VITAMINS

REACTIONS (3)
  - Immunisation reaction [None]
  - COVID-19 [None]
  - Cellulitis [None]
